FAERS Safety Report 20543766 (Version 1)
Quarter: 2022Q1

REPORT INFORMATION
  Report Type: Spontaneous
  Country: US (occurrence: US)
  Receive Date: 20220303
  Receipt Date: 20220303
  Transmission Date: 20220423
  Serious: No
  Sender: FDA-Public Use
  Company Number: US-AMGEN-USASP2022038023

PATIENT
  Age: 47 Year
  Sex: Male

DRUGS (2)
  1. OTEZLA [Suspect]
     Active Substance: APREMILAST
     Indication: Psoriasis
     Dosage: UNK, 10+ 20 + 30 MG: RX1: TAKE AS D I RECTED ON STARTER PACK
     Route: 048
     Dates: start: 20220202
  2. MOMETASONE [Concomitant]
     Active Substance: MOMETASONE
     Dosage: UNK, 0.1 PERCENT

REACTIONS (3)
  - Fatigue [Not Recovered/Not Resolved]
  - Arthralgia [Not Recovered/Not Resolved]
  - Headache [Not Recovered/Not Resolved]

NARRATIVE: CASE EVENT DATE: 20220301
